FAERS Safety Report 10994990 (Version 1)
Quarter: 2015Q2

REPORT INFORMATION
  Report Type: Spontaneous
  Country: US (occurrence: US)
  Receive Date: 20150407
  Receipt Date: 20150407
  Transmission Date: 20150821
  Serious: Yes (Hospitalization, Other)
  Sender: FDA-Public Use
  Company Number: US-GLAXOSMITHKLINE-US2015045737

PATIENT
  Age: 51 Year
  Sex: Female

DRUGS (3)
  1. LOVAZA [Suspect]
     Active Substance: OMEGA-3-ACID ETHYL ESTERS
     Indication: BLOOD CHOLESTEROL INCREASED
     Dosage: 1 G, TID
     Route: 048
     Dates: start: 2011
  2. VENTOLIN HFA [Suspect]
     Active Substance: ALBUTEROL SULFATE
     Indication: FIBROMYALGIA
     Dosage: 2 PUFF(S), PRN
  3. VENTOLIN HFA [Suspect]
     Active Substance: ALBUTEROL SULFATE
     Indication: DYSPNOEA

REACTIONS (7)
  - Blood glucose decreased [Recovered/Resolved]
  - Dyspnoea [Not Recovered/Not Resolved]
  - Loss of consciousness [Recovered/Resolved]
  - Bronchitis [Not Recovered/Not Resolved]
  - Myalgia [Not Recovered/Not Resolved]
  - Road traffic accident [Recovered/Resolved with Sequelae]
  - Muscular weakness [Not Recovered/Not Resolved]

NARRATIVE: CASE EVENT DATE: 20141128
